FAERS Safety Report 13324647 (Version 1)
Quarter: 2017Q1

REPORT INFORMATION
  Report Type: Spontaneous
  Country: US (occurrence: US)
  Receive Date: 20170310
  Receipt Date: 20170310
  Transmission Date: 20170428
  Serious: No
  Sender: FDA-Public Use
  Company Number: US-PERRIGO-17US000739

PATIENT
  Age: 21 Year
  Sex: Female
  Weight: 81.18 kg

DRUGS (2)
  1. FLAGYL [Concomitant]
     Active Substance: METRONIDAZOLE\METRONIDAZOLE HYDROCHLORIDE
     Indication: FUNGAL INFECTION
     Dosage: UNK
     Route: 065
     Dates: start: 20161225, end: 20170108
  2. LEVONORGESTREL. [Suspect]
     Active Substance: LEVONORGESTREL
     Indication: CONTRACEPTION
     Dosage: 1.5 MG, SINGLE
     Route: 048
     Dates: start: 20170101, end: 20170101

REACTIONS (1)
  - Vaginal haemorrhage [Not Recovered/Not Resolved]

NARRATIVE: CASE EVENT DATE: 20170103
